FAERS Safety Report 11931945 (Version 1)
Quarter: 2016Q1

REPORT INFORMATION
  Report Type: Spontaneous
  Country: CH (occurrence: CH)
  Receive Date: 20160120
  Receipt Date: 20160120
  Transmission Date: 20160526
  Serious: Yes (Other)
  Sender: FDA-Public Use
  Company Number: CH-ASTRAZENECA-2016SE03602

PATIENT
  Age: 49 Year
  Sex: Female

DRUGS (7)
  1. ZOLEDRONATE [Concomitant]
     Active Substance: ZOLEDRONIC ACID
     Indication: OSTEOPOROSIS PROPHYLAXIS
     Route: 065
     Dates: start: 200305, end: 200606
  2. AREDIA [Concomitant]
     Active Substance: PAMIDRONATE DISODIUM
     Indication: OSTEOPOROSIS PROPHYLAXIS
     Dates: start: 200109, end: 200304
  3. ARIMIDEX [Suspect]
     Active Substance: ANASTROZOLE
     Indication: ANTIOESTROGEN THERAPY
     Route: 048
     Dates: start: 200211, end: 200503
  4. TAMOXIFEN [Concomitant]
     Active Substance: TAMOXIFEN
     Indication: OSTEOPOROSIS PROPHYLAXIS
     Dates: start: 200109, end: 200211
  5. TAMOXIFEN [Concomitant]
     Active Substance: TAMOXIFEN
     Indication: ANTIOESTROGEN THERAPY
     Dates: start: 200109, end: 200211
  6. GOSERELIN [Concomitant]
     Active Substance: GOSERELIN
     Indication: OOPHORECTOMY
     Dates: start: 200109, end: 200209
  7. AREDIA [Concomitant]
     Active Substance: PAMIDRONATE DISODIUM
     Indication: ANTIOESTROGEN THERAPY
     Dates: start: 200109, end: 200304

REACTIONS (1)
  - Malignant neoplasm progression [Unknown]
